FAERS Safety Report 6400497-1 (Version None)
Quarter: 2009Q4

REPORT INFORMATION
  Report Type: 
  Country: None (occurrence: None)
  Receive Date: 20091013
  Receipt Date: 20091013
  Transmission Date: 20100525
  Serious: No
  Sender: FDA-Public Use
  Company Number: None

PATIENT
  Sex: Male
  Weight: 104.7809 kg

DRUGS (2)
  1. PEGASYS [Suspect]
     Indication: HEPATITIS C
     Dosage: 180 MCG/0.5ML ONCE Q WEEK SQ
     Route: 058
     Dates: start: 20090903, end: 20091008
  2. RIBAVIRIN [Suspect]
     Indication: HEPATITIS C
     Dosage: 400 MG QAM; 200 MG QPM PO
     Route: 048
     Dates: start: 20090903, end: 20091008

REACTIONS (1)
  - CONFUSIONAL STATE [None]
